FAERS Safety Report 9359725 (Version 1)
Quarter: 2013Q2

REPORT INFORMATION
  Report Type: Spontaneous
  Country: BR (occurrence: BR)
  Receive Date: 20130621
  Receipt Date: 20130621
  Transmission Date: 20140414
  Serious: Yes (Hospitalization)
  Sender: FDA-Public Use
  Company Number: BR-AMGEN-BRASP2013043417

PATIENT
  Age: 78 Year
  Sex: Female
  Weight: 75 kg

DRUGS (4)
  1. ENBREL [Suspect]
     Indication: RHEUMATOID ARTHRITIS
     Dosage: 50 MG, ONCE WEEKLY
     Route: 058
     Dates: start: 201210
  2. METFORMIN [Concomitant]
     Dosage: UNK UNK, UNK
  3. NPH INSULIN [Concomitant]
     Dosage: 10 IU AT NIGHT AND 18 IU IN THE MORNING
  4. ARADOIS [Concomitant]
     Dosage: UNK UNK, UNK

REACTIONS (2)
  - Osteoarthritis [Unknown]
  - Incision site infection [Unknown]
